FAERS Safety Report 11241157 (Version 2)
Quarter: 2015Q3

REPORT INFORMATION
  Report Type: Spontaneous
  Country: IT (occurrence: IT)
  Receive Date: 20150706
  Receipt Date: 20150723
  Transmission Date: 20151125
  Serious: Yes (Other)
  Sender: FDA-Public Use
  Company Number: IT-009507513-1507ITA000982

PATIENT
  Age: 9 Year
  Sex: Male
  Weight: 34 kg

DRUGS (1)
  1. REMERON [Suspect]
     Active Substance: MIRTAZAPINE
     Dosage: TOTAL 1 DOSE UNIT
     Route: 048
     Dates: start: 20150318, end: 20150318

REACTIONS (1)
  - Petit mal epilepsy [Not Recovered/Not Resolved]

NARRATIVE: CASE EVENT DATE: 20150318
